FAERS Safety Report 5741019-8 (Version None)
Quarter: 2008Q2

REPORT INFORMATION
  Report Type: 
  Country: None (occurrence: None)
  Receive Date: 20080516
  Receipt Date: 20080504
  Transmission Date: 20081010
  Serious: Yes (Other)
  Sender: FDA-Public Use
  Company Number: FR-PFIZER INC-2008039069

PATIENT
  Age: 6 Year
  Sex: Female

DRUGS (2)
  1. CEFPODOXIME PROXETIL SUSPENSION [Suspect]
     Indication: CYST
     Route: 048
     Dates: start: 20080201, end: 20080201
  2. ADVIL [Suspect]
     Indication: CYST
     Route: 048
     Dates: start: 20080201, end: 20080201

REACTIONS (3)
  - DYSGRAPHIA [None]
  - HEADACHE [None]
  - VISUAL DISTURBANCE [None]
